FAERS Safety Report 9038325 (Version 1)
Quarter: 2013Q1

REPORT INFORMATION
  Report Type: Report from Study
  Country: US (occurrence: US)
  Receive Date: 20130130
  Receipt Date: 20130130
  Transmission Date: 20140127
  Serious: No
  Sender: FDA-Public Use
  Company Number: US-ABBOTT-12P-163-0950961-00

PATIENT
  Age: 32 Year
  Sex: Female

DRUGS (2)
  1. HUMIRA 40 MG/ 0.8 ML PRE-FILLED SYRINGE [Suspect]
     Indication: IRITIS
  2. HUMIRA 40 MG/ 0.8 ML PRE-FILLED SYRINGE [Suspect]
     Indication: HLA MARKER STUDY

REACTIONS (4)
  - Weight increased [Not Recovered/Not Resolved]
  - Agitation [Unknown]
  - Psychiatric symptom [Unknown]
  - Generalised oedema [None]
